FAERS Safety Report 13544056 (Version 1)
Quarter: 2017Q2

REPORT INFORMATION
  Report Type: Report from Study
  Country: None (occurrence: BR)
  Receive Date: 20170515
  Receipt Date: 20170515
  Transmission Date: 20170830
  Serious: Yes (Other)
  Sender: FDA-Public Use
  Company Number: BR-ABBVIE-17P-020-1970555-00

PATIENT
  Age: 65 Year
  Sex: Male
  Weight: 94 kg

DRUGS (4)
  1. FOLIC ACID. [Concomitant]
     Active Substance: FOLIC ACID
     Indication: LIVER DISORDER
     Route: 048
     Dates: start: 201605
  2. OMEPRAZOLE. [Concomitant]
     Active Substance: OMEPRAZOLE
     Indication: GASTRIC DISORDER
     Dosage: 1 TABLET DAILY, SOMETIMES 2 TABLETS DAILY.
     Route: 048
  3. HUMIRA [Suspect]
     Active Substance: ADALIMUMAB
     Indication: PSORIATIC ARTHROPATHY
     Route: 058
     Dates: start: 20160130
  4. METHOTREXATE. [Concomitant]
     Active Substance: METHOTREXATE
     Indication: PSORIATIC ARTHROPATHY
     Route: 065

REACTIONS (13)
  - Low density lipoprotein increased [Recovered/Resolved]
  - Peripheral swelling [Not Recovered/Not Resolved]
  - Weight loss poor [Unknown]
  - Influenza [Recovered/Resolved]
  - Catarrh [Recovered/Resolved]
  - C-reactive protein abnormal [Unknown]
  - High density lipoprotein decreased [Recovered/Resolved]
  - Abdominal distension [Unknown]
  - Deafness [Recovering/Resolving]
  - Weight increased [Not Recovered/Not Resolved]
  - Pharyngeal disorder [Recovered/Resolved]
  - Body height decreased [Unknown]
  - Exostosis [Unknown]

NARRATIVE: CASE EVENT DATE: 201601
